FAERS Safety Report 20325883 (Version 1)
Quarter: 2022Q1

REPORT INFORMATION
  Report Type: Report from Study
  Country: US (occurrence: US)
  Receive Date: 20220112
  Receipt Date: 20220112
  Transmission Date: 20220424
  Serious: Yes (Other)
  Sender: FDA-Public Use
  Company Number: US-ABBVIE-22K-163-4228828-00

PATIENT
  Age: 63 Year
  Sex: Female

DRUGS (4)
  1. HUMIRA [Suspect]
     Active Substance: ADALIMUMAB
     Indication: Psoriatic arthropathy
     Dosage: CF
     Route: 058
     Dates: start: 202107
  2. HUMIRA [Suspect]
     Active Substance: ADALIMUMAB
     Indication: Psoriasis
  3. MODERNA COVID-19 VACCINE [Concomitant]
     Active Substance: ELASOMERAN
     Indication: COVID-19 immunisation
     Route: 030
  4. PFIZER-BIONTECH COVID-19 VACCINE [Concomitant]
     Active Substance: TOZINAMERAN
     Indication: COVID-19 immunisation
     Dosage: BOOSTER DOSE
     Route: 030

REACTIONS (9)
  - Subarachnoid haemorrhage [Recovered/Resolved]
  - Memory impairment [Unknown]
  - SARS-CoV-2 test positive [Not Recovered/Not Resolved]
  - Neuropathy peripheral [Recovered/Resolved]
  - Aneurysm [Recovered/Resolved]
  - Cough [Unknown]
  - Psoriasis [Not Recovered/Not Resolved]
  - Oropharyngeal pain [Unknown]
  - Headache [Unknown]

NARRATIVE: CASE EVENT DATE: 20210701
